FAERS Safety Report 22289863 (Version 1)
Quarter: 2023Q2

REPORT INFORMATION
  Report Type: Spontaneous
  Country: AU (occurrence: None)
  Receive Date: 20230505
  Receipt Date: 20230505
  Transmission Date: 20230722
  Serious: Yes (Other)
  Sender: FDA-Public Use
  Company Number: 2023A099720

PATIENT
  Sex: Female

DRUGS (16)
  1. NEXIUM [Suspect]
     Active Substance: ESOMEPRAZOLE MAGNESIUM
     Route: 048
  2. ACETAMINOPHEN\CAFFEINE\CODEINE\DOXYLAMINE [Suspect]
     Active Substance: ACETAMINOPHEN\CAFFEINE\CODEINE\DOXYLAMINE
  3. MORPHINE SULFATE [Suspect]
     Active Substance: MORPHINE SULFATE
  4. NOSCAPINE [Suspect]
     Active Substance: NOSCAPINE
  5. SOTALOL HYDROCHLORIDE [Suspect]
     Active Substance: SOTALOL HYDROCHLORIDE
  6. CODEINE [Suspect]
     Active Substance: CODEINE
  7. DOXYLAMINE SUCCINATE [Suspect]
     Active Substance: DOXYLAMINE SUCCINATE
  8. ERYTHROMYCIN [Suspect]
     Active Substance: ERYTHROMYCIN
  9. FLUOXETINE HYDROCHLORIDE [Suspect]
     Active Substance: FLUOXETINE HYDROCHLORIDE
  10. HALOTHANE [Suspect]
     Active Substance: HALOTHANE
  11. NITRAZEPAM [Suspect]
     Active Substance: NITRAZEPAM
  12. ACETAMINOPHEN [Suspect]
     Active Substance: ACETAMINOPHEN
  13. ACETAMINOPHEN [Suspect]
     Active Substance: ACETAMINOPHEN
  14. PREGABALIN [Suspect]
     Active Substance: PREGABALIN
  15. TEMAZEPAM [Suspect]
     Active Substance: TEMAZEPAM
  16. VARENICLINE [Suspect]
     Active Substance: VARENICLINE

REACTIONS (3)
  - Accidental overdose [Unknown]
  - Toxicity to various agents [Unknown]
  - Product prescribing error [Unknown]
